FAERS Safety Report 20636677 (Version 4)
Quarter: 2022Q2

REPORT INFORMATION
  Report Type: Spontaneous
  Country: JP (occurrence: JP)
  Receive Date: 20220325
  Receipt Date: 20220520
  Transmission Date: 20220720
  Serious: Yes (Other)
  Sender: FDA-Public Use
  Company Number: JP-NOVARTISPH-NVSJ2022JP004879

PATIENT
  Sex: Female
  Weight: 2.234 kg

DRUGS (4)
  1. NEORAL [Suspect]
     Active Substance: CYCLOSPORINE
     Indication: Foetal exposure during pregnancy
     Dosage: MOTHER^S DOSE: 100 MG
     Route: 064
  2. PREDNISOLONE [Suspect]
     Active Substance: PREDNISOLONE
     Indication: Foetal exposure during pregnancy
     Dosage: UNK
     Route: 064
  3. PREDNISOLONE [Suspect]
     Active Substance: PREDNISOLONE
     Dosage: MOTHER^S DOSE 30MG
     Route: 064
  4. PREDNISOLONE [Suspect]
     Active Substance: PREDNISOLONE
     Dosage: MOTHER^S DOSE 15MG
     Route: 064

REACTIONS (4)
  - Low birth weight baby [Unknown]
  - Premature baby [Unknown]
  - Hypoglycaemia [Recovered/Resolved]
  - Foetal exposure during pregnancy [Unknown]

NARRATIVE: CASE EVENT DATE: 20210427
